FAERS Safety Report 18547708 (Version 1)
Quarter: 2020Q4

REPORT INFORMATION
  Report Type: Spontaneous
  Country: US (occurrence: US)
  Receive Date: 20201125
  Receipt Date: 20201125
  Transmission Date: 20210114
  Serious: No
  Sender: FDA-Public Use
  Company Number: US-NEPHRON PHARMACEUTICALS CORPORATION-2096310

PATIENT
  Sex: Female

DRUGS (1)
  1. SODIUM CHLORIDE 7% INHALATION SOLUTION [Suspect]
     Active Substance: SODIUM CHLORIDE
     Indication: BRONCHIECTASIS
     Route: 055

REACTIONS (1)
  - Dysgeusia [Not Recovered/Not Resolved]
